FAERS Safety Report 4758745-X (Version None)
Quarter: 2005Q3

REPORT INFORMATION
  Report Type: 
  Country: None (occurrence: None)
  Receive Date: 20050831
  Receipt Date: 20050831
  Transmission Date: 20060218
  Serious: Yes (Other)
  Sender: FDA-Public Use
  Company Number: None

PATIENT
  Sex: Female
  Weight: 91.173 kg

DRUGS (1)
  1. WARFARIN [Suspect]
     Dosage: 2.5 MG-1/2 PO Q HS1-5 M-F ONE PO SAT-SUN
     Route: 048

REACTIONS (1)
  - LABORATORY TEST ABNORMAL [None]
